FAERS Safety Report 5903034-0 (Version None)
Quarter: 2008Q3

REPORT INFORMATION
  Report Type: 
  Country: None (occurrence: None)
  Receive Date: 20080926
  Receipt Date: 20080912
  Transmission Date: 20090109
  Serious: Yes (Other)
  Sender: FDA-Public Use
  Company Number: 2008S1016726

PATIENT
  Age: 72 Year
  Sex: Female

DRUGS (4)
  1. ALENDRONATE MERCK NM (ALENDRONIC ACID) [Suspect]
     Indication: OSTEOPENIA
     Dosage: 70 UG;ORAL;WEEKLY
     Route: 048
     Dates: start: 20061121, end: 20080620
  2. AMLODIPINE (AMLODIPINE) [Concomitant]
  3. ACETYLSALICYLIC ACID SRT [Concomitant]
  4. SIMVASTATIN [Concomitant]

REACTIONS (4)
  - CONDITION AGGRAVATED [None]
  - PARAESTHESIA [None]
  - RAYNAUD'S PHENOMENON [None]
  - RESTLESSNESS [None]
